FAERS Safety Report 23577180 (Version 2)
Quarter: 2024Q1

REPORT INFORMATION
  Report Type: Spontaneous
  Country: CZ (occurrence: CZ)
  Receive Date: 20240228
  Receipt Date: 20240304
  Transmission Date: 20240410
  Serious: Yes (Hospitalization, Other)
  Sender: FDA-Public Use
  Company Number: CZ-002147023-NVSC2024CZ039223

PATIENT
  Age: 69 Year
  Sex: Female

DRUGS (5)
  1. KISQALI [Suspect]
     Active Substance: RIBOCICLIB
     Indication: Breast cancer
     Dosage: 600 MG (1X DAILY FOR  21 DAYS,  FOLLOWED BY A ONE-WEEK  BREAK)
     Route: 065
     Dates: start: 202202
  2. KISQALI [Suspect]
     Active Substance: RIBOCICLIB
     Dosage: 400 MG (1X DAILY FOR  21 DAYS,  FOLLOWED BY A ONE-WEEK  BREAK)
     Route: 065
     Dates: end: 2022
  3. KISQALI [Suspect]
     Active Substance: RIBOCICLIB
     Dosage: 400 MG (1X DAILY FOR  21 DAYS,  FOLLOWED BY A ONE-WEEK  BREAK)
     Route: 065
  4. LETROZOLE [Concomitant]
     Active Substance: LETROZOLE
     Indication: Breast cancer
     Dosage: UNK
     Route: 065
     Dates: start: 202202
  5. DENOSUMAB [Concomitant]
     Active Substance: DENOSUMAB
     Indication: Dental care
     Dosage: 120 MG, QMO
     Route: 065

REACTIONS (4)
  - COVID-19 [Recovered/Resolved]
  - Cough [Recovered/Resolved]
  - Leukopenia [Unknown]
  - Therapy partial responder [Unknown]

NARRATIVE: CASE EVENT DATE: 20220101
